FAERS Safety Report 25620081 (Version 2)
Quarter: 2025Q3

REPORT INFORMATION
  Report Type: Report from Study
  Country: CO (occurrence: CO)
  Receive Date: 20250730
  Receipt Date: 20250930
  Transmission Date: 20251021
  Serious: Yes (Other)
  Sender: UCB
  Company Number: CO-UCBSA-2025045916

PATIENT
  Age: 68 Year
  Sex: Male

DRUGS (6)
  1. ROTIGOTINE [Suspect]
     Active Substance: ROTIGOTINE
     Indication: Parkinson^s disease
     Dosage: 04 MILLIGRAM, ONCE DAILY (QD)
     Route: 062
     Dates: start: 20210809, end: 20230314
  2. ROTIGOTINE [Suspect]
     Active Substance: ROTIGOTINE
     Dosage: 04 MILLIGRAM, ONCE DAILY (QD)
     Route: 062
     Dates: start: 20230315, end: 20230504
  3. ROTIGOTINE [Suspect]
     Active Substance: ROTIGOTINE
     Dosage: 04 MILLIGRAM, ONCE DAILY (QD)
     Route: 062
     Dates: start: 20230505, end: 20230723
  4. ROTIGOTINE [Suspect]
     Active Substance: ROTIGOTINE
     Dosage: 06 MILLIGRAM, ONCE DAILY (QD)
     Route: 062
     Dates: start: 20230724
  5. AMANTADINE [Concomitant]
     Active Substance: AMANTADINE
     Indication: Product used for unknown indication
  6. BIPERIDEN [Concomitant]
     Active Substance: BIPERIDEN
     Indication: Tooth disorder

REACTIONS (6)
  - Shoulder fracture [Unknown]
  - Fall [Recovered/Resolved]
  - Salivary hypersecretion [Not Recovered/Not Resolved]
  - Somnolence [Not Recovered/Not Resolved]
  - Eye disorder [Not Recovered/Not Resolved]
  - Product prescribing issue [Unknown]

NARRATIVE: CASE EVENT DATE: 20250628
